FAERS Safety Report 18105686 (Version 1)
Quarter: 2020Q3

REPORT INFORMATION
  Report Type: Report from Study
  Country: IT (occurrence: IT)
  Receive Date: 20200804
  Receipt Date: 20200804
  Transmission Date: 20201103
  Serious: Yes (Death)
  Sender: FDA-Public Use
  Company Number: IT-ACCORD-194093

PATIENT
  Age: 70 Year
  Sex: Male

DRUGS (19)
  1. HYDROCORTISONE. [Concomitant]
     Active Substance: HYDROCORTISONE
  2. CLEXANE T [Concomitant]
     Active Substance: ENOXAPARIN SODIUM
  3. CEFTRIAXONE. [Concomitant]
     Active Substance: CEFTRIAXONE
  4. AMIODARONE [Concomitant]
     Active Substance: AMIODARONE
  5. HALOPERIDOL. [Concomitant]
     Active Substance: HALOPERIDOL
  6. QUETIAPINE. [Suspect]
     Active Substance: QUETIAPINE
     Indication: AGITATION
     Dates: start: 20200326, end: 20200503
  7. PIPERACILLIN SODIUM/TAZOBACTAM SODIUM [Concomitant]
     Active Substance: PIPERACILLIN SODIUM\TAZOBACTAM SODIUM
  8. RITONAVIR. [Concomitant]
     Active Substance: RITONAVIR
  9. MIDAZOLAM. [Concomitant]
     Active Substance: MIDAZOLAM
  10. DEXAMETHASONE. [Concomitant]
     Active Substance: DEXAMETHASONE
  11. TOCILIZUMAB. [Concomitant]
     Active Substance: TOCILIZUMAB
  12. HYDROXYCHLOROQUINE [Concomitant]
     Active Substance: HYDROXYCHLOROQUINE
  13. MEROPENEM. [Concomitant]
     Active Substance: MEROPENEM
  14. ARIXTRA [Concomitant]
     Active Substance: FONDAPARINUX SODIUM
     Dosage: STRENGTH 7.5 MG/0.6 ML
  15. DARUNAVIR [Concomitant]
     Active Substance: DARUNAVIR
  16. OMEPRAZOLE. [Concomitant]
     Active Substance: OMEPRAZOLE
  17. FLUCONAZOLE. [Concomitant]
     Active Substance: FLUCONAZOLE
  18. METHYLPREDNISOLONE. [Concomitant]
     Active Substance: METHYLPREDNISOLONE
  19. VANCOMYCIN [Concomitant]
     Active Substance: VANCOMYCIN

REACTIONS (1)
  - Anaemia macrocytic [Fatal]

NARRATIVE: CASE EVENT DATE: 20200326
